FAERS Safety Report 4717921-2 (Version None)
Quarter: 2005Q3

REPORT INFORMATION
  Report Type: 
  Country: None (occurrence: None)
  Receive Date: 20050715
  Receipt Date: 20050331
  Transmission Date: 20060218
  Serious: Yes (Hospitalization)
  Sender: FDA-Public Use
  Company Number: 2005FR-00093

PATIENT
  Age: 22 Year
  Sex: Female

DRUGS (4)
  1. FLUOXETINE [Suspect]
  2. ACETAMINOPHEN [Suspect]
  3. ARIPIPRAZOLE [Concomitant]
  4. DEPAKOTE [Concomitant]

REACTIONS (4)
  - INTENTIONAL MISUSE [None]
  - INTERNATIONAL NORMALISED RATIO INCREASED [None]
  - MULTIPLE DRUG OVERDOSE [None]
  - SUICIDE ATTEMPT [None]
